FAERS Safety Report 10594323 (Version 2)
Quarter: 2014Q4

REPORT INFORMATION
  Report Type: Spontaneous
  Country: US (occurrence: US)
  Receive Date: 20141119
  Receipt Date: 20141210
  Transmission Date: 20150529
  Serious: No
  Sender: FDA-Public Use
  Company Number: US-PFIZER INC-2014316766

PATIENT
  Age: 85 Year
  Sex: Male

DRUGS (11)
  1. BISOPROLOL [Concomitant]
     Active Substance: BISOPROLOL
     Dosage: UNK, 2X/DAY (2.5 MG AM, 1.25 MG PM)
     Dates: start: 20141003
  2. BUMETANIDE. [Concomitant]
     Active Substance: BUMETANIDE
     Dosage: 1 MG, UNK
     Dates: start: 2013
  3. MAGNESIUM OXIDE. [Concomitant]
     Active Substance: MAGNESIUM OXIDE
     Dosage: 400 MG, UNK
  4. TIKOSYN [Suspect]
     Active Substance: DOFETILIDE
     Indication: LOSS OF CONSCIOUSNESS
  5. TIKOSYN [Suspect]
     Active Substance: DOFETILIDE
     Indication: PERIPHERAL SWELLING
  6. COUMADIN [Concomitant]
     Active Substance: WARFARIN SODIUM
     Dosage: 6 MG, UNK
     Dates: start: 2013
  7. TIKOSYN [Suspect]
     Active Substance: DOFETILIDE
     Indication: HEART RATE INCREASED
     Dosage: 250 MG, 2X/DAY (AM AND PM)
     Dates: start: 20141003
  8. TIKOSYN [Suspect]
     Active Substance: DOFETILIDE
     Indication: DYSPNOEA
  9. COD LIVER OIL [Concomitant]
     Active Substance: COD LIVER OIL
     Dosage: UNK, 3X/WEEK
  10. VITAMIN D3 [Concomitant]
     Active Substance: CHOLECALCIFEROL
     Dosage: 2000 IU, DAILY
  11. POTASSIUM [Concomitant]
     Active Substance: POTASSIUM
     Dosage: 595 MG, DAILY

REACTIONS (2)
  - Product use issue [Unknown]
  - Skin discolouration [Unknown]
